FAERS Safety Report 6984453-0 (Version None)
Quarter: 2010Q3

REPORT INFORMATION
  Report Type: 
  Country: None (occurrence: None)
  Receive Date: 20100915
  Receipt Date: 20100908
  Transmission Date: 20110219
  Serious: Yes (Death)
  Sender: FDA-Public Use
  Company Number: US-CELGENEUS-163-21880-10060358

PATIENT
  Sex: Male

DRUGS (8)
  1. REVLIMID [Suspect]
     Route: 048
     Dates: start: 20100101, end: 20100101
  2. REVLIMID [Suspect]
     Route: 048
     Dates: start: 20080422, end: 20080101
  3. REVLIMID [Suspect]
     Route: 048
     Dates: start: 20090101, end: 20090101
  4. REVLIMID [Suspect]
     Route: 048
     Dates: start: 20090324, end: 20091130
  5. ATENOLOL [Concomitant]
     Indication: HYPERTENSION
     Route: 065
  6. LASIX [Concomitant]
     Route: 065
  7. NORVASC [Concomitant]
     Indication: HYPERTENSION
     Route: 065
  8. ASPIRIN [Concomitant]
     Indication: PRODUCT USED FOR UNKNOWN INDICATION
     Route: 065

REACTIONS (1)
  - LUNG CANCER METASTATIC [None]
